FAERS Safety Report 9412682 (Version 2)
Quarter: 2013Q3

REPORT INFORMATION
  Report Type: Spontaneous
  Country: US (occurrence: US)
  Receive Date: 20130626
  Receipt Date: 20130820
  Transmission Date: 20140515
  Serious: Yes (Other)
  Sender: FDA-Public Use
  Company Number: 54973 AE # 1405

PATIENT
  Age: 10 Month
  Sex: Female

DRUGS (1)
  1. HYLAND^S BABY TEETHING TABLETS [Suspect]
     Indication: TEETHING
     Dosage: 2-3TABS Q6 QD X 4 MONTHS

REACTIONS (3)
  - Tremor [None]
  - Musculoskeletal stiffness [None]
  - Feeling abnormal [None]
